FAERS Safety Report 4564822-9 (Version None)
Quarter: 2005Q1

REPORT INFORMATION
  Report Type: 
  Country: None (occurrence: None)
  Receive Date: 20050128
  Receipt Date: 20041122
  Transmission Date: 20050727
  Serious: Yes (Life-Threatening, Hospitalization, Disabling)
  Sender: FDA-Public Use
  Company Number: US-MERCK-0411USA03580

PATIENT
  Age: 39 Year
  Sex: Female

DRUGS (20)
  1. VIOXX [Suspect]
     Indication: PAIN IN EXTREMITY
     Route: 048
     Dates: start: 20010101
  2. VIOXX [Suspect]
     Route: 048
     Dates: start: 20030408, end: 20030611
  3. ACTOS [Concomitant]
     Route: 065
     Dates: start: 20031231
  4. TOPROL-XL [Concomitant]
     Route: 065
     Dates: start: 20040413
  5. WELLBUTRIN SR [Concomitant]
     Route: 065
     Dates: start: 20010213
  6. PROZAC [Concomitant]
     Route: 065
     Dates: start: 20040602
  7. [THERAPY UNSPECIFIED] [Concomitant]
     Route: 065
  8. HYDROCODONE HYDROCHLORIDE [Concomitant]
     Route: 065
  9. LORTAB [Concomitant]
     Route: 065
     Dates: start: 20040713
  10. VIOXX [Suspect]
     Route: 048
     Dates: start: 20030722, end: 20030101
  11. TOPAMAX [Concomitant]
     Route: 065
     Dates: start: 20031014
  12. TEGRETOL [Concomitant]
     Route: 065
     Dates: start: 20040809
  13. VIOXX [Suspect]
     Route: 048
     Dates: start: 20030101, end: 20040801
  14. TRIAMCINOLONE [Concomitant]
     Route: 065
  15. VIOXX [Suspect]
     Route: 048
     Dates: start: 20010101
  16. ASPIRIN [Concomitant]
     Route: 065
     Dates: start: 20010213
  17. VIOXX [Suspect]
     Route: 048
     Dates: start: 20030408, end: 20030611
  18. VIOXX [Suspect]
     Route: 048
     Dates: start: 20030722, end: 20030101
  19. VIOXX [Suspect]
     Route: 048
     Dates: start: 20030101, end: 20040801
  20. LIPITOR [Concomitant]
     Route: 065
     Dates: start: 20040602

REACTIONS (8)
  - CHEST DISCOMFORT [None]
  - CHEST PAIN [None]
  - HYPERTENSION [None]
  - INSULIN RESISTANCE [None]
  - MEDICATION ERROR [None]
  - NECK PAIN [None]
  - PAIN IN EXTREMITY [None]
  - VASOCONSTRICTION [None]
